FAERS Safety Report 17083320 (Version 3)
Quarter: 2020Q3

REPORT INFORMATION
  Report Type: Spontaneous
  Country: US (occurrence: US)
  Receive Date: 20191127
  Receipt Date: 20200828
  Transmission Date: 20201102
  Serious: No
  Sender: FDA-Public Use
  Company Number: US-SA-2019SA329738

PATIENT

DRUGS (7)
  1. KIRKLAND SIGNATURE ALLERCLEAR [Concomitant]
     Active Substance: LORATADINE
     Dosage: UNK
  2. BETA CAROTENE. [Concomitant]
     Active Substance: BETA CAROTENE
     Dosage: UNK
  3. FEXOFENADINE HCL [Concomitant]
     Active Substance: FEXOFENADINE HYDROCHLORIDE
     Dosage: UNK
  4. DUPIXENT [Suspect]
     Active Substance: DUPILUMAB
     Indication: DERMATITIS ATOPIC
     Dosage: 300 MG, TIM
     Route: 058
     Dates: start: 201908
  5. PNEUMOVAX 23 [Concomitant]
     Active Substance: PNEUMOCOCCAL VACCINE, POLYVALENT 23
     Dosage: UNK
  6. LEVOTHYROXINE SODIUM. [Concomitant]
     Active Substance: LEVOTHYROXINE SODIUM
     Dosage: UNK
  7. CLOBETASOL PROPIONATE. [Concomitant]
     Active Substance: CLOBETASOL PROPIONATE
     Dosage: UNK

REACTIONS (7)
  - Skin exfoliation [Unknown]
  - Eczema [Unknown]
  - Rash macular [Unknown]
  - Eczema [Unknown]
  - Psoriasis [Unknown]
  - Dry skin [Unknown]
  - Sleep disorder [Unknown]

NARRATIVE: CASE EVENT DATE: 201908
